FAERS Safety Report 7012466-1 (Version None)
Quarter: 2010Q3

REPORT INFORMATION
  Report Type: 
  Country: None (occurrence: None)
  Receive Date: 20100924
  Receipt Date: 20100920
  Transmission Date: 20110219
  Serious: Yes (Other)
  Sender: FDA-Public Use
  Company Number: US-BRISTOL-MYERS SQUIBB COMPANY-15296411

PATIENT
  Age: 61 Year
  Sex: Female
  Weight: 61 kg

DRUGS (10)
  1. KENALOG [Suspect]
     Dosage: 31MAR08:80MG
     Dates: start: 20080311
  2. NABUMETONE [Concomitant]
     Dosage: 2 X 5 DAILY
  3. SOMA [Concomitant]
     Dosage: AT BED TIME
  4. HERBAL MIXTURE [Concomitant]
  5. MILK THISTLE [Concomitant]
  6. ECHINACEA [Concomitant]
  7. HAWTHORN BERRY EXTRACT [Concomitant]
  8. LIDOCAINE [Concomitant]
  9. OMNIPAQUE 140 [Concomitant]
     Dosage: 1 DF = 1-2ML OMNIPAQUE 240 CONTRAST INJECTION
  10. CARISOPRODOL [Concomitant]

REACTIONS (7)
  - BALANCE DISORDER [None]
  - DYSPHAGIA [None]
  - DYSPNOEA [None]
  - FEELING ABNORMAL [None]
  - FREQUENT BOWEL MOVEMENTS [None]
  - TREMOR [None]
  - WEIGHT INCREASED [None]
